FAERS Safety Report 23942317 (Version 1)
Quarter: 2024Q2

REPORT INFORMATION
  Report Type: Spontaneous
  Country: US (occurrence: US)
  Receive Date: 20240605
  Receipt Date: 20240605
  Transmission Date: 20240716
  Serious: No
  Sender: FDA-Public Use
  Company Number: US-SERB S.A.S.-2157804

PATIENT
  Age: 9 Year
  Sex: Female

DRUGS (1)
  1. GLUCARPIDASE [Suspect]
     Active Substance: GLUCARPIDASE
     Indication: Toxicity to various agents
     Route: 065

REACTIONS (3)
  - Off label use [Unknown]
  - Laboratory test interference [Unknown]
  - Overdose [Unknown]
